FAERS Safety Report 9144105 (Version 2)
Quarter: 2013Q2

REPORT INFORMATION
  Report Type: Spontaneous
  Country: AU (occurrence: AU)
  Receive Date: 20130306
  Receipt Date: 20130423
  Transmission Date: 20140414
  Serious: Yes (Life-Threatening)
  Sender: FDA-Public Use
  Company Number: AU-GLAXOSMITHKLINE-B0866385A

PATIENT
  Age: 64 Year
  Sex: Male

DRUGS (3)
  1. SERETIDE ACCUHALER [Suspect]
     Indication: EMPHYSEMA
     Dosage: 1PUFF PER DAY
     Route: 065
  2. SPIRIVA [Concomitant]
  3. ONBREZ [Concomitant]

REACTIONS (3)
  - Drug effect decreased [Unknown]
  - Cough [Unknown]
  - Product quality issue [Unknown]
